FAERS Safety Report 11981976 (Version 1)
Quarter: 2016Q1

REPORT INFORMATION
  Report Type: Spontaneous
  Country: JP (occurrence: JP)
  Receive Date: 20160201
  Receipt Date: 20160201
  Transmission Date: 20160526
  Serious: Yes (Other)
  Sender: FDA-Public Use
  Company Number: JP-STRIDES ARCOLAB LIMITED-2016SP000501

PATIENT

DRUGS (3)
  1. TACROLIMUS. [Suspect]
     Active Substance: TACROLIMUS
     Indication: LIVER TRANSPLANT
     Dosage: UNK
  2. TACROLIMUS. [Suspect]
     Active Substance: TACROLIMUS
     Dosage: 0.1 MG/KG, QD
  3. PREDNISOLONE. [Concomitant]
     Active Substance: PREDNISOLONE
     Indication: LIVER TRANSPLANT
     Dosage: UNK

REACTIONS (12)
  - Swelling face [Recovered/Resolved]
  - Lymphadenopathy [Recovered/Resolved]
  - Face oedema [Recovered/Resolved]
  - Urticaria [Recovered/Resolved]
  - Diarrhoea [Recovered/Resolved]
  - Lip swelling [Recovered/Resolved]
  - Anaphylactic shock [Recovered/Resolved]
  - Food allergy [Recovered/Resolved]
  - Stridor [Recovered/Resolved]
  - Erythema [Recovered/Resolved]
  - Oral pruritus [Recovered/Resolved]
  - Dermatitis atopic [Recovered/Resolved]
